FAERS Safety Report 5191085-6 (Version None)
Quarter: 2006Q4

REPORT INFORMATION
  Report Type: 
  Country: None (occurrence: None)
  Receive Date: 20061218
  Receipt Date: 20061218
  Transmission Date: 20070319
  Serious: Yes (Other)
  Sender: FDA-Public Use
  Company Number: None

PATIENT
  Sex: Female
  Weight: 72.7 kg

DRUGS (1)
  1. PACLITAXEL [Suspect]
     Indication: OVARIAN CANCER RECURRENT
     Dosage: 143    WEEKLY    IV DRIP
     Route: 041
     Dates: start: 20061205, end: 20061205

REACTIONS (2)
  - BACK PAIN [None]
  - INFUSION RELATED REACTION [None]
